FAERS Safety Report 5797993-7 (Version None)
Quarter: 2008Q2

REPORT INFORMATION
  Report Type: 
  Country: None (occurrence: None)
  Receive Date: 20080601
  Receipt Date: 20080204
  Transmission Date: 20081010
  Serious: No
  Sender: FDA-Public Use
  Company Number: US200802000868

PATIENT
  Age: 65 Year
  Sex: Female

DRUGS (6)
  1. BYETTA [Suspect]
     Indication: TYPE 2 DIABETES MELLITUS
     Dosage: 5 UG, 2/D, SUBCUTANEOUS : 10 UG, 2/D, SUBCUTANEOUS
     Route: 058
     Dates: start: 20060901, end: 20061001
  2. BYETTA [Suspect]
     Indication: TYPE 2 DIABETES MELLITUS
     Dosage: 5 UG, 2/D, SUBCUTANEOUS : 10 UG, 2/D, SUBCUTANEOUS
     Route: 058
     Dates: start: 20061001
  3. LANTUS [Concomitant]
  4. GLUCOPHAGE [Concomitant]
  5. HUMALOG [Concomitant]
  6. NOVOLOG [Concomitant]

REACTIONS (4)
  - ANOREXIA [None]
  - BLOOD GLUCOSE DECREASED [None]
  - HUNGER [None]
  - INCORRECT DOSE ADMINISTERED [None]
